FAERS Safety Report 6927597-1 (Version None)
Quarter: 2010Q3

REPORT INFORMATION
  Report Type: 
  Country: None (occurrence: None)
  Receive Date: 20100816
  Receipt Date: 20100816
  Transmission Date: 20110219
  Serious: Yes (Other)
  Sender: FDA-Public Use
  Company Number: None

PATIENT
  Age: 38 Year
  Sex: Female
  Weight: 84.8226 kg

DRUGS (2)
  1. GASTROGRAFIN [Suspect]
     Indication: GALLBLADDER DISORDER
     Dosage: 30 ML BOTTLE ONCE PO
     Route: 048
     Dates: start: 20100810, end: 20100810
  2. RADIOLOGICAL IV CONTRAST [Concomitant]

REACTIONS (25)
  - ABDOMINAL DISCOMFORT [None]
  - ARRHYTHMIA [None]
  - ARTHRALGIA [None]
  - CARDIAC FLUTTER [None]
  - CHILLS [None]
  - CONTUSION [None]
  - DECREASED APPETITE [None]
  - DIARRHOEA [None]
  - DYSGEUSIA [None]
  - DYSPNOEA [None]
  - EAR PRURITUS [None]
  - EYE PRURITUS [None]
  - FAECAL VOLUME INCREASED [None]
  - FATIGUE [None]
  - FOOD CRAVING [None]
  - INCORRECT DOSE ADMINISTERED [None]
  - INFLUENZA LIKE ILLNESS [None]
  - NAUSEA [None]
  - OCULAR HYPERAEMIA [None]
  - PHARYNGEAL DISORDER [None]
  - PRURITUS [None]
  - PYREXIA [None]
  - RASH ERYTHEMATOUS [None]
  - SOMNOLENCE [None]
  - URTICARIA [None]
